FAERS Safety Report 9387619 (Version 2)
Quarter: 2014Q2

REPORT INFORMATION
  Report Type: Spontaneous
  Country: IT (occurrence: IT)
  Receive Date: 20130708
  Receipt Date: 20140402
  Transmission Date: 20141212
  Serious: Yes (Hospitalization)
  Sender: FDA-Public Use
  Company Number: IT-PFIZER INC-2013199229

PATIENT
  Age: 66 Year
  Sex: Female

DRUGS (10)
  1. PANTORC [Suspect]
     Indication: GASTROOESOPHAGEAL REFLUX DISEASE
     Dosage: 40 MG, DAILY
     Route: 048
     Dates: start: 20130516, end: 20130601
  2. KARVEA [Concomitant]
     Dosage: 150 MG, UNK
     Route: 048
  3. ALMARYTM [Concomitant]
     Dosage: 100 MG, UNK
     Route: 048
  4. LYRICA [Concomitant]
     Dosage: 75 MG, UNK
     Route: 048
  5. ROCALTROL [Concomitant]
     Dosage: 0.25 UG, UNK
     Route: 048
  6. DEURSIL [Concomitant]
     Dosage: 300 MG, UNK
     Route: 048
  7. CARDURA [Concomitant]
     Dosage: 2 MG, UNK
     Route: 048
  8. SPIRIVA [Concomitant]
     Dosage: 18 UG, UNK
     Route: 055
  9. ALIFLUS [Concomitant]
     Dosage: 50/500 UG, UNK
     Route: 055
  10. CARDIRENE [Concomitant]
     Dosage: 75 MG, UNK
     Route: 048

REACTIONS (6)
  - Decreased appetite [Recovering/Resolving]
  - Asthenia [Recovering/Resolving]
  - Nausea [Recovering/Resolving]
  - Pruritus [Recovering/Resolving]
  - Vomiting [Recovering/Resolving]
  - Generalised erythema [Recovering/Resolving]
